FAERS Safety Report 9119942 (Version 1)
Quarter: 2013Q1

REPORT INFORMATION
  Report Type: Spontaneous
  Country: CO (occurrence: CO)
  Receive Date: 20130226
  Receipt Date: 20130226
  Transmission Date: 20140127
  Serious: Yes (Hospitalization, Other)
  Sender: FDA-Public Use
  Company Number: CO-ELI_LILLY_AND_COMPANY-CO201302005722

PATIENT
  Age: 81 Year
  Sex: Female

DRUGS (6)
  1. FORTEO [Suspect]
     Indication: OSTEOPOROSIS
     Dosage: 20 UG, QD
     Route: 058
     Dates: start: 201206, end: 201212
  2. LOSARTAN [Concomitant]
  3. HYDROCHLOROTHIAZIDE [Concomitant]
  4. ACETAMINOPHEN [Concomitant]
  5. CALCIUM [Concomitant]
     Indication: SUPPLEMENTATION THERAPY
  6. VITAMIN D [Concomitant]

REACTIONS (4)
  - Hip fracture [Recovering/Resolving]
  - Pelvic fracture [Recovering/Resolving]
  - Upper limb fracture [Recovering/Resolving]
  - Fall [Recovering/Resolving]
